FAERS Safety Report 4872785-1 (Version None)
Quarter: 2006Q1

REPORT INFORMATION
  Report Type: 
  Country: None (occurrence: None)
  Receive Date: 20060103
  Receipt Date: 20051222
  Transmission Date: 20060701
  Serious: Yes (Death, Hospitalization, Other)
  Sender: FDA-Public Use
  Company Number: US200512002526

PATIENT
  Sex: Male

DRUGS (2)
  1. XIGRIS [Suspect]
     Indication: SEPSIS
     Dosage: 24UG/KG/HR,
     Dates: start: 20050101, end: 20050101
  2. XIGRIS [Suspect]
     Indication: SEPSIS
     Dosage: 24UG/KG/HR,
     Dates: start: 20050301, end: 20050301

REACTIONS (2)
  - CATHETER SEPSIS [None]
  - CENTRAL LINE INFECTION [None]
